FAERS Safety Report 24585755 (Version 1)
Quarter: 2024Q4

REPORT INFORMATION
  Report Type: Spontaneous
  Country: US (occurrence: None)
  Receive Date: 20241106
  Receipt Date: 20241106
  Transmission Date: 20250115
  Serious: Yes (Hospitalization)
  Sender: Public
  Company Number: None

PATIENT
  Age: 37 Year

DRUGS (1)
  1. TAVNEOS [Suspect]
     Active Substance: AVACOPAN
     Indication: Granulomatosis with polyangiitis
     Dosage: FREQUENCY : DAILY;?
     Route: 048
     Dates: start: 20230104

REACTIONS (3)
  - Hepatitis C [None]
  - Granulomatosis with polyangiitis [None]
  - Condition aggravated [None]

NARRATIVE: CASE EVENT DATE: 20241013
